FAERS Safety Report 8907329 (Version 1)
Quarter: 2012Q4

REPORT INFORMATION
  Report Type: 
  Country: FR (occurrence: FR)
  Receive Date: 20121114
  Receipt Date: 20121114
  Transmission Date: 20130627
  Serious: Yes (Hospitalization)
  Sender: FDA-Public Use
  Company Number: PHHY2012FR104237

PATIENT
  Age: 76 Year
  Sex: Male

DRUGS (8)
  1. COMTAN [Suspect]
     Dosage: 600 mg, Daily
     Route: 048
  2. MODOPAR [Suspect]
     Dosage: 3 DF, once daily
     Route: 048
  3. MODOPAR [Suspect]
     Dosage: UNK
     Route: 048
  4. ZYPREXA [Concomitant]
     Dosage: 1 DF, daily
     Route: 048
  5. TEDRALAN [Concomitant]
  6. OXEOL [Concomitant]
  7. ALLOPURINOL [Concomitant]
  8. RISPERDAL [Concomitant]
     Indication: AGITATION

REACTIONS (13)
  - Lung disorder [Unknown]
  - Neuroleptic malignant syndrome [Unknown]
  - Rhabdomyolysis [Unknown]
  - Pyrexia [Recovered/Resolved]
  - Dehydration [Unknown]
  - Heart rate increased [Unknown]
  - Blood pressure abnormal [Unknown]
  - Blood sodium increased [Unknown]
  - Blood creatine phosphokinase increased [Recovering/Resolving]
  - Myoglobin blood increased [Unknown]
  - Renal failure acute [Unknown]
  - Oral candidiasis [Unknown]
  - Hypophagia [Unknown]
